FAERS Safety Report 7498597-0 (Version None)
Quarter: 2011Q2

REPORT INFORMATION
  Report Type: 
  Country: None (occurrence: None)
  Receive Date: 20110524
  Receipt Date: 20110510
  Transmission Date: 20111010
  Serious: Yes (Hospitalization, Other)
  Sender: FDA-Public Use
  Company Number: US-BAYER-201039149NA

PATIENT
  Age: 33 Year
  Sex: Female
  Weight: 107 kg

DRUGS (5)
  1. VICODIN [Concomitant]
  2. YASMIN [Suspect]
     Indication: PRODUCT USED FOR UNKNOWN INDICATION
     Route: 048
  3. ROBAXIN [Concomitant]
  4. SOMA [Concomitant]
  5. XANAX [Concomitant]

REACTIONS (4)
  - CHOLECYSTITIS CHRONIC [None]
  - DYSFUNCTIONAL UTERINE BLEEDING [None]
  - GALLBLADDER NON-FUNCTIONING [None]
  - PELVIC PAIN [None]
